FAERS Safety Report 9250305 (Version 1)
Quarter: 2013Q2

REPORT INFORMATION
  Report Type: Spontaneous
  Country: US (occurrence: None)
  Receive Date: 20130419
  Receipt Date: 20130419
  Transmission Date: 20140414
  Serious: Yes (Other)
  Sender: FDA-Public Use
  Company Number: None

PATIENT
  Age: 28 Year
  Sex: Female
  Weight: 66.68 kg

DRUGS (1)
  1. DECADRON [Suspect]
     Indication: ASTHMA
     Dosage: ONE INJECTION MUSCLE
     Dates: start: 20130417, end: 20130417

REACTIONS (4)
  - Dehydration [None]
  - Lethargy [None]
  - Vomiting [None]
  - Exposure during breast feeding [None]
